FAERS Safety Report 6441963-2 (Version None)
Quarter: 2009Q4

REPORT INFORMATION
  Report Type: 
  Country: None (occurrence: None)
  Receive Date: 20091116
  Receipt Date: 20091113
  Transmission Date: 20100525
  Serious: No
  Sender: FDA-Public Use
  Company Number: US-ROXANE LABORATORIES, INC.-2009-RO-01169RO

PATIENT
  Sex: Male

DRUGS (2)
  1. PREDNISONE [Suspect]
  2. ACTONEL [Suspect]

REACTIONS (5)
  - BONE DENSITY DECREASED [None]
  - DIZZINESS [None]
  - DYSPEPSIA [None]
  - INSOMNIA [None]
  - ORAL ADMINISTRATION COMPLICATION [None]
